FAERS Safety Report 14588918 (Version 1)
Quarter: 2018Q1

REPORT INFORMATION
  Report Type: Spontaneous
  Country: US (occurrence: US)
  Receive Date: 20180301
  Receipt Date: 20180301
  Transmission Date: 20180509
  Serious: No
  Sender: FDA-Public Use
  Company Number: US-BAUSCH-BL-2018-000593

PATIENT
  Age: 87 Year
  Sex: Female
  Weight: 74.46 kg

DRUGS (2)
  1. ETHACRYNIC ACID. [Suspect]
     Active Substance: ETHACRYNIC ACID
     Indication: OEDEMA
     Route: 048
     Dates: start: 2017
  2. ETHACRYNIC ACID. [Suspect]
     Active Substance: ETHACRYNIC ACID
     Route: 048
     Dates: end: 20180104

REACTIONS (1)
  - Visual impairment [Not Recovered/Not Resolved]
